FAERS Safety Report 4325987-7 (Version None)
Quarter: 2004Q1

REPORT INFORMATION
  Report Type: 
  Country: None (occurrence: None)
  Receive Date: 20040329
  Receipt Date: 20040317
  Transmission Date: 20041129
  Serious: Yes (Hospitalization)
  Sender: FDA-Public Use
  Company Number: FI-GLAXOSMITHKLINE-B0327048A

PATIENT
  Sex: Female
  Weight: 90 kg

DRUGS (1)
  1. ZYBAN [Suspect]
     Dosage: 150MG TWICE PER DAY
     Route: 048
     Dates: start: 20040225, end: 20040312

REACTIONS (6)
  - DYSPNOEA [None]
  - ECZEMA [None]
  - OEDEMA MUCOSAL [None]
  - PRURITUS [None]
  - URTICARIA [None]
  - VISUAL DISTURBANCE [None]
